FAERS Safety Report 5280192-5 (Version None)
Quarter: 2007Q1

REPORT INFORMATION
  Report Type: 
  Country: None (occurrence: None)
  Receive Date: 20070326
  Receipt Date: 20070326
  Transmission Date: 20070707
  Serious: Yes (Hospitalization)
  Sender: FDA-Public Use
  Company Number: None

PATIENT
  Age: 60 Year
  Sex: Female
  Weight: 74 kg

DRUGS (2)
  1. VINFLUNINE [Suspect]
     Indication: NON-SMALL CELL LUNG CANCER
     Dosage: 320MG/M2 Q3WK IV
     Route: 042
     Dates: start: 20070206, end: 20070227
  2. CETUXIMAB [Suspect]
     Indication: NON-SMALL CELL LUNG CANCER
     Dosage: 250MG/M2 WEEKLY IV
     Route: 042
     Dates: start: 20070206

REACTIONS (14)
  - ASPIRATION PLEURAL CAVITY ABNORMAL [None]
  - ATRIAL FIBRILLATION [None]
  - CREPITATIONS [None]
  - DYSPNOEA [None]
  - HAEMATEMESIS [None]
  - HAEMATOCRIT DECREASED [None]
  - HAEMOPTYSIS [None]
  - HEART RATE INCREASED [None]
  - HYPOTENSION [None]
  - INTERNATIONAL NORMALISED RATIO INCREASED [None]
  - PERICARDIAL EFFUSION [None]
  - PLEURAL EFFUSION [None]
  - PYREXIA [None]
  - STREPTOCOCCAL INFECTION [None]
